FAERS Safety Report 4699877-4 (Version None)
Quarter: 2005Q2

REPORT INFORMATION
  Report Type: 
  Country: None (occurrence: None)
  Receive Date: 20050623
  Receipt Date: 20050610
  Transmission Date: 20051028
  Serious: Yes (Other)
  Sender: FDA-Public Use
  Company Number: HQWYE362810JUN05

PATIENT
  Age: 58 Year
  Sex: Female

DRUGS (2)
  1. CORDARONE [Suspect]
     Indication: ATRIAL FLUTTER
     Dosage: UNKNOWN DOSE/FREQUENCY
     Route: 048
     Dates: start: 20050101, end: 20050201
  2. ISOPTIN [Concomitant]

REACTIONS (5)
  - ARRHYTHMIA [None]
  - DYSPEPSIA [None]
  - OPTIC NEUROPATHY [None]
  - PAPILLOEDEMA [None]
  - VISUAL FIELD DEFECT [None]
